FAERS Safety Report 6092818-7 (Version None)
Quarter: 2009Q1

REPORT INFORMATION
  Report Type: 
  Country: None (occurrence: None)
  Receive Date: 20090225
  Receipt Date: 20090218
  Transmission Date: 20090719
  Serious: Yes (Hospitalization)
  Sender: FDA-Public Use
  Company Number: US-ELI_LILLY_AND_COMPANY-US200902004467

PATIENT
  Sex: Female
  Weight: 83.9 kg

DRUGS (4)
  1. ZYPREXA [Suspect]
     Dosage: 10 MG, UNK
     Dates: start: 19970101, end: 19990101
  2. ZYPREXA [Suspect]
     Dosage: 10 MG, UNK
     Dates: start: 20050101, end: 20050101
  3. RISPERIDONE [Concomitant]
     Dates: start: 19850101, end: 19970101
  4. RISPERIDONE [Concomitant]
     Dates: start: 20050101

REACTIONS (3)
  - CARDIAC DISORDER [None]
  - DIABETES MELLITUS [None]
  - WEIGHT INCREASED [None]
